FAERS Safety Report 9522864 (Version 1)
Quarter: 2013Q3

REPORT INFORMATION
  Report Type: Spontaneous
  Country: RO (occurrence: RO)
  Receive Date: 20130913
  Receipt Date: 20130913
  Transmission Date: 20140515
  Serious: Yes (Life-Threatening, Hospitalization)
  Sender: FDA-Public Use
  Company Number: RO-GLAXOSMITHKLINE-B0922091A

PATIENT
  Age: 54 Year
  Sex: Female

DRUGS (5)
  1. BENLYSTA [Suspect]
     Indication: SYSTEMIC LUPUS ERYTHEMATOSUS
     Dosage: 920MG PER DAY
     Route: 042
     Dates: start: 20130806, end: 20130806
  2. APROVEL [Concomitant]
     Dosage: 150MG PER DAY
     Route: 065
  3. CALCIUM LACTATE [Concomitant]
     Dosage: 1000MG PER DAY
  4. RISEDRONIC ACID [Concomitant]
     Dosage: 35MG WEEKLY
  5. OMEPRAZOL [Concomitant]
     Dosage: 20MG PER DAY

REACTIONS (2)
  - Pyrexia [Recovered/Resolved]
  - Spondylitis [Recovered/Resolved]
